FAERS Safety Report 20890200 (Version 1)
Quarter: 2022Q2

REPORT INFORMATION
  Report Type: Spontaneous
  Country: US (occurrence: US)
  Receive Date: 20220530
  Receipt Date: 20220530
  Transmission Date: 20220721
  Serious: No
  Sender: FDA-Public Use
  Company Number: US-BRISTOL-MYERS SQUIBB COMPANY-2022-033048

PATIENT
  Age: 77 Year
  Sex: Female
  Weight: 69.399 kg

DRUGS (1)
  1. POMALYST [Suspect]
     Active Substance: POMALIDOMIDE
     Indication: Plasma cell myeloma
     Dosage: FREQ: DAILY FOR 21 DAYS.
     Route: 048
     Dates: start: 20180701

REACTIONS (2)
  - Fatigue [Unknown]
  - Alopecia [Unknown]
